FAERS Safety Report 8417370 (Version 3)
Quarter: 2015Q2

REPORT INFORMATION
  Report Type: Spontaneous
  Country: US (occurrence: US)
  Receive Date: 20120220
  Receipt Date: 20150609
  Transmission Date: 20150821
  Serious: Yes (Other)
  Sender: FDA-Public Use
  Company Number: US-ASTRAZENECA-2012SE07928

PATIENT
  Age: 67 Year
  Sex: Female

DRUGS (1)
  1. NEXIUM [Suspect]
     Active Substance: ESOMEPRAZOLE MAGNESIUM
     Route: 048

REACTIONS (6)
  - Abdominal pain [Unknown]
  - Drug dose omission [Unknown]
  - Atypical pneumonia [Unknown]
  - Laryngitis [Unknown]
  - Feeling abnormal [Unknown]
  - Nasopharyngitis [Unknown]
